FAERS Safety Report 9115849 (Version 1)
Quarter: 2013Q1

REPORT INFORMATION
  Report Type: Spontaneous
  Country: SV (occurrence: SV)
  Receive Date: 20130225
  Receipt Date: 20130225
  Transmission Date: 20140127
  Serious: Yes (Hospitalization)
  Sender: FDA-Public Use
  Company Number: SV-ELI_LILLY_AND_COMPANY-SV201302005092

PATIENT
  Age: 85 Year
  Sex: Male

DRUGS (3)
  1. DULOXETINE HYDROCHLORIDE [Suspect]
     Indication: MAJOR DEPRESSION
     Dosage: 60 MG, EACH EVENING
     Route: 048
     Dates: end: 20130213
  2. OLANZAPINE [Suspect]
     Indication: PSYCHOTIC DISORDER
     Dosage: 10 MG, EACH EVENING
  3. BETAMETHASONE [Concomitant]
     Route: 061

REACTIONS (2)
  - Asthmatic crisis [Recovering/Resolving]
  - Insomnia [Recovering/Resolving]
